FAERS Safety Report 17917353 (Version 1)
Quarter: 2020Q2

REPORT INFORMATION
  Report Type: Report from Study
  Country: US (occurrence: US)
  Receive Date: 20200619
  Receipt Date: 20200619
  Transmission Date: 20200714
  Serious: Yes (Congenital Anomaly, Other)
  Sender: FDA-Public Use
  Company Number: US-MYLANLABS-2020M1057194

PATIENT
  Age: 0 Year

DRUGS (1)
  1. GLATIRAMER [Suspect]
     Active Substance: GLATIRAMER
     Indication: MULTIPLE SCLEROSIS
     Dosage: 40 MILLIGRAM, 3XW
     Route: 064
     Dates: start: 20190520, end: 201911

REACTIONS (7)
  - Craniofacial deformity [Unknown]
  - Premature baby [Unknown]
  - Foetal exposure during pregnancy [Recovered/Resolved]
  - Limb malformation [Unknown]
  - Ectopic kidney [Unknown]
  - Meningocele [Unknown]
  - Cleft lip [Unknown]

NARRATIVE: CASE EVENT DATE: 2019
